FAERS Safety Report 10276887 (Version 2)
Quarter: 2014Q3

REPORT INFORMATION
  Report Type: Report from Study
  Country: DK (occurrence: DK)
  Receive Date: 20140703
  Receipt Date: 20140829
  Transmission Date: 20150326
  Serious: Yes (Hospitalization)
  Sender: FDA-Public Use
  Company Number: DK-BIOGENIDEC-2014BI061174

PATIENT
  Age: 31 Year
  Sex: Female

DRUGS (6)
  1. DULOXETIN [Concomitant]
     Active Substance: DULOXETINE
     Indication: DEPRESSION
     Route: 048
  2. TYSABRI [Suspect]
     Active Substance: NATALIZUMAB
     Indication: MULTIPLE SCLEROSIS
     Route: 042
     Dates: start: 20070329
  3. LAMOTRIGEN [Concomitant]
     Route: 048
  4. OLANZAPIN [Concomitant]
     Active Substance: OLANZAPINE
     Indication: DEPRESSION
     Route: 048
  5. TYSABRI [Suspect]
     Active Substance: NATALIZUMAB
     Indication: MULTIPLE SCLEROSIS
     Route: 042
     Dates: start: 20110723
  6. LEVOTHYROXIN [Concomitant]
     Active Substance: LEVOTHYROXINE
     Indication: MYXOEDEMA
     Route: 048

REACTIONS (2)
  - Urinary tract infection [Recovered/Resolved]
  - Epilepsy [Recovered/Resolved]

NARRATIVE: CASE EVENT DATE: 20110716
